FAERS Safety Report 4651205-6 (Version None)
Quarter: 2005Q2

REPORT INFORMATION
  Report Type: 
  Country: None (occurrence: None)
  Receive Date: 20050503
  Receipt Date: 20050428
  Transmission Date: 20051028
  Serious: Yes (Death, Other)
  Sender: FDA-Public Use
  Company Number: PHBS2005IT06172

PATIENT
  Age: 72 Year
  Sex: Female

DRUGS (1)
  1. AREDIA [Suspect]
     Indication: METASTASES TO BONE
     Dosage: 90 MG, QMO
     Dates: start: 19990101, end: 20040201

REACTIONS (5)
  - DEATH [None]
  - FISTULA [None]
  - GINGIVAL SWELLING [None]
  - OSTEITIS [None]
  - WOUND DEBRIDEMENT [None]
